FAERS Safety Report 10395738 (Version 1)
Quarter: 2014Q3

REPORT INFORMATION
  Report Type: Report from Study
  Country: US (occurrence: US)
  Receive Date: 20140820
  Receipt Date: 20140820
  Transmission Date: 20150326
  Serious: Yes (Other)
  Sender: FDA-Public Use
  Company Number: PHEH2014US016336

PATIENT
  Sex: Female

DRUGS (3)
  1. FEMARA [Suspect]
     Active Substance: LETROZOLE
     Dosage: UNK UKN, UNK
  2. AROMASIN [Suspect]
     Active Substance: EXEMESTANE
     Dosage: UNK UKN, UNK
  3. AFINITOR [Suspect]
     Active Substance: EVEROLIMUS
     Dosage: 50 MG, UNK

REACTIONS (3)
  - Tumour marker increased [Unknown]
  - Neoplasm malignant [Unknown]
  - Metastasis [Unknown]
